FAERS Safety Report 8142673-6 (Version None)
Quarter: 2012Q1

REPORT INFORMATION
  Report Type: 
  Country: None (occurrence: None)
  Receive Date: 20120216
  Receipt Date: 20120207
  Transmission Date: 20120608
  Serious: Yes (Hospitalization)
  Sender: FDA-Public Use
  Company Number: KR-BAXTER-2012BH004023

PATIENT
  Age: 51 Year
  Sex: Female
  Weight: 78 kg

DRUGS (18)
  1. ADALAT [Concomitant]
     Indication: HYPERTENSION
     Route: 048
     Dates: start: 20101202
  2. CALCIUM POLYSTYRENE SULFONATE [Concomitant]
     Indication: HYPERKALAEMIA
     Route: 048
     Dates: start: 20110427
  3. CALCIUM CARBONATE [Concomitant]
     Indication: ELECTROLYTE IMBALANCE
     Route: 048
     Dates: start: 20110810
  4. VANCOMYCIN [Concomitant]
     Indication: CATHETER SITE INFECTION
     Route: 033
     Dates: start: 20110817, end: 20110801
  5. TENORMIN [Concomitant]
     Indication: HYPERTENSION
     Route: 048
     Dates: start: 20100903
  6. ACTOS [Concomitant]
     Indication: DIABETES MELLITUS
     Route: 048
     Dates: start: 20100903
  7. ATORVASTATIN [Concomitant]
     Indication: HYPERLIPIDAEMIA
     Route: 048
     Dates: start: 20100903
  8. PENTOXIFYLLINE [Concomitant]
     Indication: PRODUCT USED FOR UNKNOWN INDICATION
     Route: 048
     Dates: start: 20100903
  9. ARANESP [Concomitant]
     Indication: ANAEMIA
     Route: 058
     Dates: start: 20110427
  10. EXTRANEAL [Suspect]
     Indication: RENAL FAILURE CHRONIC
     Route: 033
     Dates: start: 20110427
  11. PHYSIOSOL IN PLASTIC CONTAINER [Suspect]
     Indication: PERITONEAL DIALYSIS
     Route: 033
     Dates: start: 20110401
  12. ZAROXOLYN [Concomitant]
     Indication: DIURETIC THERAPY
     Route: 048
     Dates: start: 20101202
  13. JANUVIA [Concomitant]
     Indication: DIABETES MELLITUS
     Route: 048
     Dates: start: 20100903
  14. FERROUS SULFATE TAB [Concomitant]
     Indication: MINERAL SUPPLEMENTATION
     Route: 048
     Dates: start: 20110317
  15. GLIMEL [Concomitant]
     Indication: DIABETES MELLITUS
     Route: 048
     Dates: start: 20100903
  16. VITAMIN B COMPLEX WITH C [Concomitant]
     Indication: VITAMIN SUPPLEMENTATION
     Route: 048
     Dates: start: 20110318
  17. PHYSIOSOL IN PLASTIC CONTAINER [Suspect]
     Indication: RENAL FAILURE CHRONIC
     Route: 033
     Dates: start: 20110401
  18. EXTRANEAL [Suspect]
     Indication: PERITONEAL DIALYSIS
     Route: 033
     Dates: start: 20110427

REACTIONS (1)
  - VITREOUS HAEMORRHAGE [None]
